FAERS Safety Report 24409823 (Version 2)
Quarter: 2024Q4

REPORT INFORMATION
  Report Type: Spontaneous
  Country: US (occurrence: US)
  Receive Date: 20241008
  Receipt Date: 20241231
  Transmission Date: 20250115
  Serious: Yes (Other)
  Sender: JOHNSON AND JOHNSON
  Company Number: US-JNJFOC-20241001039

PATIENT
  Age: 45 Year
  Sex: Female

DRUGS (1)
  1. TREMFYA [Suspect]
     Active Substance: GUSELKUMAB
     Indication: Psoriatic arthropathy
     Route: 065
     Dates: start: 20240821

REACTIONS (3)
  - Psoriatic arthropathy [Not Recovered/Not Resolved]
  - Pneumonia [Unknown]
  - Overdose [Unknown]

NARRATIVE: CASE EVENT DATE: 20240821
